FAERS Safety Report 15121727 (Version 2)
Quarter: 2018Q3

REPORT INFORMATION
  Report Type: Spontaneous
  Country: US (occurrence: US)
  Receive Date: 20180709
  Receipt Date: 20180725
  Transmission Date: 20181010
  Serious: Yes (Other)
  Sender: FDA-Public Use
  Company Number: US-PFIZER INC-2018268107

PATIENT
  Age: 64 Year
  Sex: Female
  Weight: 54.43 kg

DRUGS (1)
  1. CHANTIX [Suspect]
     Active Substance: VARENICLINE TARTRATE
     Indication: SMOKING CESSATION THERAPY
     Dosage: UNK

REACTIONS (11)
  - Somnambulism [Not Recovered/Not Resolved]
  - Patella fracture [Unknown]
  - Hand fracture [Unknown]
  - Fall [Not Recovered/Not Resolved]
  - Loss of consciousness [Unknown]
  - Facial bones fracture [Unknown]
  - Spinal fracture [Unknown]
  - Rib fracture [Unknown]
  - Laceration [Unknown]
  - Seizure [Unknown]
  - Head injury [Unknown]
